FAERS Safety Report 20627547 (Version 1)
Quarter: 2022Q1

REPORT INFORMATION
  Report Type: Spontaneous
  Country: US (occurrence: US)
  Receive Date: 20220323
  Receipt Date: 20220323
  Transmission Date: 20220423
  Serious: No
  Sender: FDA-Public Use
  Company Number: US-TARO-2021TAR01165

PATIENT

DRUGS (1)
  1. LAMOTRIGINE [Interacting]
     Active Substance: LAMOTRIGINE
     Indication: Bipolar disorder
     Dosage: 100 MG CUT IT IN HALF
     Route: 065

REACTIONS (5)
  - Drug interaction [Unknown]
  - Initial insomnia [Unknown]
  - Terminal insomnia [Unknown]
  - Somnolence [Unknown]
  - Wrong technique in product usage process [Unknown]
